FAERS Safety Report 19759186 (Version 4)
Quarter: 2022Q1

REPORT INFORMATION
  Report Type: Report from Study
  Country: US (occurrence: US)
  Receive Date: 20210827
  Receipt Date: 20220303
  Transmission Date: 20220424
  Serious: Yes (Death)
  Sender: FDA-Public Use
  Company Number: US-NOVARTISTESTPH-NVSC2021US193505

PATIENT
  Age: 68 Year
  Sex: Female

DRUGS (1)
  1. COSENTYX [Suspect]
     Active Substance: SECUKINUMAB
     Indication: Psoriasis
     Dosage: UNK
     Route: 065

REACTIONS (2)
  - Death [Fatal]
  - Psoriasis [Unknown]

NARRATIVE: CASE EVENT DATE: 20220124
